FAERS Safety Report 24749252 (Version 1)
Quarter: 2024Q4

REPORT INFORMATION
  Report Type: Spontaneous
  Country: CN (occurrence: CN)
  Receive Date: 20241218
  Receipt Date: 20241218
  Transmission Date: 20250115
  Serious: Yes (Hospitalization, Other)
  Sender: GLAXOSMITHKLINE
  Company Number: CN-GLAXOSMITHKLINE-CN2023GSK153301

PATIENT

DRUGS (1)
  1. ZEJULA [Suspect]
     Active Substance: NIRAPARIB
     Indication: Ovarian cancer stage III
     Dosage: 200 MG, QD
     Route: 048
     Dates: start: 20230411, end: 20230818

REACTIONS (14)
  - Thrombocytopenia [Recovering/Resolving]
  - Pigmentation disorder [Unknown]
  - Photosensitivity reaction [Unknown]
  - White blood cell count decreased [Not Recovered/Not Resolved]
  - Neutrophil count decreased [Not Recovered/Not Resolved]
  - Haemoglobin decreased [Recovering/Resolving]
  - Fibrin D dimer increased [Unknown]
  - Carbohydrate antigen 19-9 increased [Unknown]
  - Blood creatinine increased [Unknown]
  - Thyroid mass [Unknown]
  - Red blood cell count decreased [Not Recovered/Not Resolved]
  - Neutrophil percentage increased [Recovering/Resolving]
  - Blood follicle stimulating hormone increased [Unknown]
  - Blood luteinising hormone decreased [Unknown]

NARRATIVE: CASE EVENT DATE: 20230610
